FAERS Safety Report 9203187 (Version 1)
Quarter: 2013Q1

REPORT INFORMATION
  Report Type: Spontaneous
  Country: US (occurrence: None)
  Receive Date: 20120709
  Receipt Date: 20120709
  Transmission Date: 20140127
  Serious: No
  Sender: FDA-Public Use
  Company Number: PHHY2010US70846

PATIENT
  Age: 56 Year
  Sex: Male

DRUGS (1)
  1. GLEEVEC (IMATINIB) UNKNOWN [Suspect]
     Indication: LEUKAEMIA
     Route: 048
     Dates: start: 2005

REACTIONS (2)
  - Drug ineffective [None]
  - Drug resistance [None]
